FAERS Safety Report 12930364 (Version 1)
Quarter: 2016Q4

REPORT INFORMATION
  Report Type: Spontaneous
  Country: US (occurrence: US)
  Receive Date: 20161110
  Receipt Date: 20161110
  Transmission Date: 20170207
  Serious: Yes (Hospitalization, Other)
  Sender: FDA-Public Use
  Company Number: US-009507513-1611USA002083

PATIENT
  Age: 56 Year
  Sex: Male
  Weight: 86.6 kg

DRUGS (7)
  1. ZEPATIER [Suspect]
     Active Substance: ELBASVIR\GRAZOPREVIR
     Indication: HEPATITIS C
     Dosage: 1 DF, QD
     Route: 048
     Dates: start: 20160714, end: 20161002
  2. CELLCEPT [Concomitant]
     Active Substance: MYCOPHENOLATE MOFETIL\MYCOPHENOLATE MOFETIL HYDROCHLORIDE
  3. AMLODIPINE [Concomitant]
     Active Substance: AMLODIPINE BESYLATE
  4. INSULIN [Concomitant]
     Active Substance: INSULIN NOS
  5. ASPIRIN. [Concomitant]
     Active Substance: ASPIRIN
  6. CYCLOSPORINE. [Concomitant]
     Active Substance: CYCLOSPORINE
  7. METOPROLOL. [Concomitant]
     Active Substance: METOPROLOL

REACTIONS (2)
  - Haemorrhage [Unknown]
  - Hernia [Unknown]

NARRATIVE: CASE EVENT DATE: 201609
